FAERS Safety Report 13663865 (Version 1)
Quarter: 2017Q2

REPORT INFORMATION
  Report Type: Spontaneous
  Country: US (occurrence: US)
  Receive Date: 20170619
  Receipt Date: 20170619
  Transmission Date: 20170830
  Serious: Yes (Other)
  Sender: FDA-Public Use
  Company Number: US-TEVA-767917ACC

PATIENT
  Sex: Female

DRUGS (8)
  1. AMBIEN [Concomitant]
     Active Substance: ZOLPIDEM TARTRATE
     Indication: INSOMNIA
  2. TRAMADOL. [Suspect]
     Active Substance: TRAMADOL
     Route: 065
  3. POTASSIUM [Concomitant]
     Active Substance: POTASSIUM
  4. BABY ASPIRIN [Concomitant]
     Active Substance: ASPIRIN
  5. MAGNESIUM [Concomitant]
     Active Substance: MAGNESIUM
  6. XANAX [Concomitant]
     Active Substance: ALPRAZOLAM
     Indication: INSOMNIA
  7. BUPROPION EXTENDED RELEASE XL [Suspect]
     Active Substance: BUPROPION
     Route: 065
  8. TYLENOL [Suspect]
     Active Substance: ACETAMINOPHEN
     Route: 065

REACTIONS (1)
  - Hypertension [Recovered/Resolved]
